FAERS Safety Report 20693549 (Version 3)
Quarter: 2022Q3

REPORT INFORMATION
  Report Type: Spontaneous
  Country: US (occurrence: US)
  Receive Date: 20220411
  Receipt Date: 20220927
  Transmission Date: 20221027
  Serious: Yes (Other)
  Sender: FDA-Public Use
  Company Number: US-BRISTOL-MYERS SQUIBB COMPANY-2022-015385

PATIENT
  Age: 70 Year
  Sex: Female

DRUGS (25)
  1. REVLIMID [Suspect]
     Active Substance: LENALIDOMIDE
     Indication: Plasma cell myeloma
     Dosage: DAILY (DAY 1-21, OUT OF 28)
     Route: 048
     Dates: start: 20220310, end: 20220323
  2. REVLIMID [Suspect]
     Active Substance: LENALIDOMIDE
     Dosage: 10 MG ORALLY DAILY 1-21 OUT OF 28 DAY
     Route: 048
  3. REVLIMID [Suspect]
     Active Substance: LENALIDOMIDE
     Dosage: DAYS 1-21 EVERY 28 DAYS CYCLE. TAKE WHOLE WITH WATER, WITH OR WITHOUT FOOD AT APPROXIMATELY AT THE S
     Route: 048
  4. ACYCLOVIR [Concomitant]
     Active Substance: ACYCLOVIR
     Indication: Product used for unknown indication
     Dosage: 1 TAB  ORALLY  DAILY
     Route: 048
  5. MONTELUKAST [Concomitant]
     Active Substance: MONTELUKAST SODIUM
     Indication: Product used for unknown indication
     Dosage: START THE EVENING BEFORE DARATUMUMAB AND CONTINUE DAILY FOR 3 DAYS, CONTINUE AS NEEDED AFTER CYCLE 1
     Route: 048
  6. LEVOTHYROXINE SODIUM [Concomitant]
     Active Substance: LEVOTHYROXINE SODIUM
     Indication: Product used for unknown indication
     Route: 048
  7. MELOXICAM [Concomitant]
     Active Substance: MELOXICAM
     Indication: Product used for unknown indication
     Route: 048
  8. METOPROLOL SUCCINATE [Concomitant]
     Active Substance: METOPROLOL SUCCINATE
     Indication: Product used for unknown indication
     Dosage: 50 MG TABLET EXTENDED RELEASE 24 HR QD BID. AM DOSE IS 25MG AND PM DOSE IS 50MG
     Route: 048
  9. TYLENOL [Concomitant]
     Active Substance: ACETAMINOPHEN
     Indication: Product used for unknown indication
     Route: 048
  10. CHOLECALCIFEROL [Concomitant]
     Active Substance: CHOLECALCIFEROL
     Indication: Product used for unknown indication
     Route: 048
  11. DARZALEX [Concomitant]
     Active Substance: DARATUMUMAB
     Indication: Product used for unknown indication
     Dosage: 20MG/ML SOLUTION, DOSE: 1200 MG INTRAVENOUSLY PIGGYBACK ONCE.??ADMIX FLUID: 0.9% SODIUM CHLORIDE?INS
     Route: 042
  12. DEXAMETHASONE SODIUM PHOSPHATE [Concomitant]
     Active Substance: DEXAMETHASONE SODIUM PHOSPHATE
     Indication: Product used for unknown indication
     Dosage: DOSE: 20 MG INTRAVENOUSLY PIGGYBACK ONCE.??ADMIX FLUID: 0.9% SODIUM CHLORIDE?ADMIN OVER: 20MINS
     Route: 042
  13. DEXAMETHASONE [Concomitant]
     Active Substance: DEXAMETHASONE
     Indication: Product used for unknown indication
     Dosage: TAKE 20MG (5 TABLETS) ON DAY 2 OF EACH CYCLE. TAKE 40MG (10 TABLETS) ON DAYS 8, 15, 22 OF EACH CYCLE
     Route: 048
  14. DEXAMETHASONE [Concomitant]
     Active Substance: DEXAMETHASONE
     Dosage: TAKE 20MG (5 TABLETS) ON DAY 2 OF EACH CYCLE. TAKE 40MG (10 TABLETS) ON DAYS 8, 15, 22 OF EACH CYCLE
     Route: 048
  15. DEXAMETHASONE [Concomitant]
     Active Substance: DEXAMETHASONE
     Dosage: TAKE 20MG (5 TABLETS) WEEKLY. CYCLES 7 AND BEYOND. Q28D (C1 SPLIT DOSING). TAKE 20MG (5 TABLETS) ON
     Route: 048
  16. ALBUTEROL SULFATE [Concomitant]
     Active Substance: ALBUTEROL SULFATE
     Indication: Dyspnoea
     Dosage: 90 MCG/ACTUATION HFA AEROSOL INHALER.??TAKE 1 PUFF AS DIRECTED FOR SHORTNESS OF BREATH DURING OR AFT
     Route: 055
  17. ACETAMINOPHEN [Concomitant]
     Active Substance: ACETAMINOPHEN
     Indication: Product used for unknown indication
     Dosage: ADMINISTERED 2 TABLETS 1 HOUR PRIOR TO DARATUMUMAB. 650MG ONLY ONCE.??DOSE RANGE: 650 TO 1000MG
     Route: 048
  18. DIPHENHYDRAMINE [Concomitant]
     Active Substance: DIPHENHYDRAMINE
     Indication: Hypersensitivity
     Dosage: 25 MG INTRAVENOUSLY ONCE. ADMINISTER IV OR PO 1 HOUR PRIOR TO DARATUMUMAB
     Route: 042
  19. DIPHENHYDRAMINE [Concomitant]
     Active Substance: DIPHENHYDRAMINE
     Dosage: 50 MG INTRAVENOUSLY AS NEEDED FOR HYPERSENSITIVITY REACTION.
     Route: 042
  20. EPINEPHRINE [Concomitant]
     Active Substance: EPINEPHRINE
     Indication: Hypersensitivity
     Dosage: 1MG/ML SOLUTION, 0.3MG INTRAVENOUSLY ONCE AS NEEDED FOR HYPERSENSITIVITY REACTION.
     Route: 042
  21. FAMOTIDINE [Concomitant]
     Active Substance: FAMOTIDINE
     Indication: Hypersensitivity
     Dosage: 20 MG INTRAVENOUSLY AS NEEDED FOR HYPERSENSITIVITY REACTION. 10MG/ML SOLUTION.
     Route: 042
  22. HYDROCORTISONE [Concomitant]
     Active Substance: HYDROCORTISONE
     Indication: Hypersensitivity
     Dosage: 100 MG INTRAVENOUSLY AS NEEDED FOR HYPERSENSITIVITY REACTION.
     Route: 042
  23. METHYLPREDNISOLONE [Concomitant]
     Active Substance: METHYLPREDNISOLONE
     Indication: Hypersensitivity
     Dosage: 125 MG INTRAVENOUSLY AS NEEDED FOR HYPERSENSITIVITY REACTION.
     Route: 042
  24. GABAPENTIN [Concomitant]
     Active Substance: GABAPENTIN
     Indication: Product used for unknown indication
     Dosage: 1 CAPSULE ORALLY EVERY DAY AT BEDTIME
     Route: 048
  25. DARATUMUMAB;HYALURONIDASE FIHJ [Concomitant]
     Indication: Product used for unknown indication
     Dosage: Q 28 DAYS (C1 SPLIT DOSING); 1800MG-30000 UNIT/15ML SOLUTION. 1800MG SUBCUTANEOUSLY ONCE
     Route: 058

REACTIONS (3)
  - Syncope [Recovered/Resolved]
  - Loss of consciousness [Unknown]
  - Muscle spasms [Unknown]

NARRATIVE: CASE EVENT DATE: 20220323
